FAERS Safety Report 25586029 (Version 2)
Quarter: 2025Q3

REPORT INFORMATION
  Report Type: Spontaneous
  Country: US (occurrence: US)
  Receive Date: 20250721
  Receipt Date: 20250901
  Transmission Date: 20251020
  Serious: No
  Sender: BRISTOL-MYERS SQUIBB COMPANY
  Company Number: US-BRISTOL-MYERS SQUIBB COMPANY-2025-101924

PATIENT
  Age: 75 Year
  Sex: Female
  Weight: 81.19 kg

DRUGS (2)
  1. REVLIMID [Suspect]
     Active Substance: LENALIDOMIDE
     Indication: Plasma cell myeloma
     Route: 048
  2. REVLIMID [Suspect]
     Active Substance: LENALIDOMIDE
     Route: 048

REACTIONS (8)
  - Neutrophil count decreased [Recovering/Resolving]
  - Faeces soft [Recovering/Resolving]
  - Constipation [Unknown]
  - Abdominal distension [Unknown]
  - Hot flush [Unknown]
  - Diarrhoea [Unknown]
  - Muscle spasms [Unknown]
  - Chills [Unknown]
